FAERS Safety Report 9022524 (Version 1)
Quarter: 2013Q1

REPORT INFORMATION
  Report Type: Spontaneous
  Country: US (occurrence: US)
  Receive Date: 20130118
  Receipt Date: 20130118
  Transmission Date: 20140127
  Serious: No
  Sender: FDA-Public Use
  Company Number: US-GLAXOSMITHKLINE-A0955774A

PATIENT
  Age: 57 Year
  Sex: Male

DRUGS (10)
  1. PROMACTA [Suspect]
     Indication: IDIOPATHIC THROMBOCYTOPENIC PURPURA
     Dosage: 50MG PER DAY
     Route: 048
     Dates: start: 201106
  2. DAYQUIL [Suspect]
     Indication: NASOPHARYNGITIS
     Dosage: 2TBS TWICE PER DAY
     Route: 048
     Dates: start: 20111127, end: 20111128
  3. LAMICTAL [Concomitant]
  4. LIPITOR [Concomitant]
  5. VALACYCLOVIR [Concomitant]
  6. VITAMIN D [Concomitant]
  7. VITAMIN C [Concomitant]
  8. GLUCOSAMINE [Concomitant]
  9. ADVAIR [Concomitant]
  10. MAXAIR [Concomitant]

REACTIONS (7)
  - Nonspecific reaction [Recovered/Resolved]
  - Urticaria [Recovered/Resolved]
  - Swelling face [Recovered/Resolved]
  - Pyrexia [Recovered/Resolved]
  - Headache [Recovered/Resolved]
  - Hyperhidrosis [Unknown]
  - Drug interaction [Unknown]
